FAERS Safety Report 8930145 (Version 2)
Quarter: 2013Q2

REPORT INFORMATION
  Report Type: Report from Study
  Country: US (occurrence: US)
  Receive Date: 20121128
  Receipt Date: 20130503
  Transmission Date: 20140414
  Serious: Yes (Hospitalization, Other)
  Sender: FDA-Public Use
  Company Number: US-ABBOTT-12P-163-1011028-00

PATIENT
  Age: 60 Year
  Sex: Male

DRUGS (6)
  1. HUMIRA [Suspect]
     Indication: CROHN^S DISEASE
     Route: 058
     Dates: start: 201201, end: 201208
  2. VITAMIN B-12 [Concomitant]
     Indication: PRODUCT USED FOR UNKNOWN INDICATION
  3. VITAMIN D [Concomitant]
     Indication: PRODUCT USED FOR UNKNOWN INDICATION
  4. MERCAPTOPURINE [Concomitant]
     Indication: PRODUCT USED FOR UNKNOWN INDICATION
  5. MARCAINE [Concomitant]
     Indication: NERVE BLOCK
     Dates: start: 20130213, end: 20130213
  6. LIDOCAINE [Concomitant]
     Indication: NERVE BLOCK
     Dates: start: 20130213, end: 20130213

REACTIONS (13)
  - Anal fistula [Unknown]
  - Clear cell renal cell carcinoma [Unknown]
  - Acoustic neuroma [Unknown]
  - Proctalgia [Unknown]
  - Benign pancreatic neoplasm [Unknown]
  - Stomach mass [Unknown]
  - Pancreatic cyst [Unknown]
  - Bile duct stone [Unknown]
  - Cholelithiasis [Unknown]
  - Fibrosis [Unknown]
  - Lung carcinoma cell type unspecified stage 0 [Unknown]
  - Cholelithiasis [Unknown]
  - Anal inflammation [Unknown]
